FAERS Safety Report 4373098-7 (Version None)
Quarter: 2004Q2

REPORT INFORMATION
  Report Type: 
  Country: None (occurrence: None)
  Receive Date: 20040603
  Receipt Date: 20040519
  Transmission Date: 20050107
  Serious: Yes (Hospitalization, Other)
  Sender: FDA-Public Use
  Company Number: US_0405103165

PATIENT
  Age: 61 Year
  Sex: Female
  Weight: 65 kg

DRUGS (6)
  1. VANCOMYCIN [Suspect]
     Indication: ALPHA HAEMOLYTIC STREPTOCOCCAL INFECTION
  2. VANCOMYCIN [Suspect]
     Indication: BLOOD CULTURE POSITIVE
  3. NEUPOGEN [Concomitant]
  4. CYTARABINE [Concomitant]
  5. DAUNORUBICIN HCL [Concomitant]
  6. UNSPECIFIED ANTIBIOTICS [Concomitant]

REACTIONS (8)
  - ALPHA HAEMOLYTIC STREPTOCOCCAL INFECTION [None]
  - CARDIAC FAILURE CONGESTIVE [None]
  - FEBRILE NEUTROPENIA [None]
  - HYPOXIA [None]
  - LOSS OF CONSCIOUSNESS [None]
  - LUNG INFILTRATION [None]
  - RASH [None]
  - SYNCOPE VASOVAGAL [None]
